FAERS Safety Report 18323261 (Version 1)
Quarter: 2020Q3

REPORT INFORMATION
  Report Type: Spontaneous
  Country: JP (occurrence: JP)
  Receive Date: 20200928
  Receipt Date: 20200928
  Transmission Date: 20201103
  Serious: Yes (Hospitalization, Other)
  Sender: FDA-Public Use
  Company Number: PHHY2015JP129532

PATIENT
  Age: 52 Year
  Sex: Male

DRUGS (1)
  1. REVOLADE [Suspect]
     Active Substance: ELTROMBOPAG
     Indication: IMMUNE THROMBOCYTOPENIA
     Dosage: ?????
     Route: 048

REACTIONS (10)
  - Myocardial infarction [Unknown]
  - Embolic stroke [Unknown]
  - Haemorrhagic cerebral infarction [Unknown]
  - Platelet count decreased [Unknown]
  - Monoplegia [Unknown]
  - Cardiac ventricular thrombosis [Unknown]
  - Ventricular hypokinesia [Unknown]
  - Coronary artery occlusion [Unknown]
  - Cerebral infarction [Unknown]
  - Muscular weakness [Unknown]
